FAERS Safety Report 9736136 (Version 1)
Quarter: 2013Q4

REPORT INFORMATION
  Report Type: Spontaneous
  Country: GB (occurrence: GB)
  Receive Date: 20131206
  Receipt Date: 20131206
  Transmission Date: 20140711
  Serious: Yes (Hospitalization)
  Sender: FDA-Public Use
  Company Number: PHHY2013GB139639

PATIENT
  Age: 65 Year
  Sex: Male
  Weight: 78.95 kg

DRUGS (10)
  1. PIOGLITAZONE [Suspect]
     Indication: DIABETES MELLITUS
     Dosage: 15 MG, QD
     Route: 048
     Dates: start: 20130215, end: 20130606
  2. PIOGLITAZONE [Suspect]
     Dosage: 30 MG, QD
     Route: 048
     Dates: start: 20130606, end: 20130717
  3. ASPIRIN [Concomitant]
  4. LOSARTAN [Concomitant]
  5. GLICLAZIDE [Concomitant]
  6. METFORMIN [Concomitant]
  7. SILDENAFIL [Concomitant]
  8. SIMVASTATIN [Concomitant]
  9. BETAHISTINE [Concomitant]
  10. CINNARIZINE [Concomitant]

REACTIONS (2)
  - Left ventricular hypertrophy [Not Recovered/Not Resolved]
  - Dizziness [Not Recovered/Not Resolved]
